FAERS Safety Report 25701020 (Version 2)
Quarter: 2025Q3

REPORT INFORMATION
  Report Type: Spontaneous
  Country: US (occurrence: US)
  Receive Date: 20250819
  Receipt Date: 20250901
  Transmission Date: 20251021
  Serious: Yes (Hospitalization)
  Sender: TEVA
  Company Number: US-TEVA-VS-3362659

PATIENT
  Age: 66 Year
  Sex: Male

DRUGS (1)
  1. DAPSONE [Suspect]
     Active Substance: DAPSONE
     Indication: Dermatitis
     Route: 065

REACTIONS (2)
  - Methaemoglobinaemia [Recovering/Resolving]
  - Hypoxia [Recovering/Resolving]
